FAERS Safety Report 5403265-2 (Version None)
Quarter: 2007Q3

REPORT INFORMATION
  Report Type: 
  Country: None (occurrence: None)
  Receive Date: 20070730
  Receipt Date: 20070717
  Transmission Date: 20080115
  Serious: Yes (Other)
  Sender: FDA-Public Use
  Company Number: 826/2007S1004877

PATIENT
  Age: 17 Year
  Sex: Female
  Weight: 80 kg

DRUGS (2)
  1. AMNESTEEM [Suspect]
     Indication: ACNE
     Dosage: 40 MG, BID, PO
     Route: 048
     Dates: start: 20060928, end: 20061004
  2. BIRTH CONTROL PILLS [Concomitant]

REACTIONS (16)
  - AFFECT LABILITY [None]
  - ANGER [None]
  - ANXIETY [None]
  - DEPRESSION [None]
  - DRY SKIN [None]
  - EMOTIONAL DISORDER [None]
  - FEELING OF DESPAIR [None]
  - HAEMATOCHEZIA [None]
  - INSOMNIA [None]
  - IRREGULAR SLEEP PHASE [None]
  - IRRITABILITY [None]
  - NAUSEA [None]
  - NECK INJURY [None]
  - STRESS [None]
  - SUICIDAL IDEATION [None]
  - WEIGHT FLUCTUATION [None]
